FAERS Safety Report 23409171 (Version 3)
Quarter: 2024Q1

REPORT INFORMATION
  Report Type: Report from Study
  Country: RO (occurrence: RO)
  Receive Date: 20240117
  Receipt Date: 20240215
  Transmission Date: 20240410
  Serious: Yes (Hospitalization, Other)
  Sender: FDA-Public Use
  Company Number: RO-002147023-NVSC2024RO006442

PATIENT
  Age: 66 Year
  Sex: Female

DRUGS (3)
  1. KISQALI [Suspect]
     Active Substance: RIBOCICLIB
     Indication: Breast cancer
     Dosage: 600 MG, QD (200 MG) (21DAYS/7D AYS BREAK)
     Route: 048
     Dates: start: 2021, end: 2021
  2. KISQALI [Suspect]
     Active Substance: RIBOCICLIB
     Indication: Metastases to bone
     Dosage: 400 MG, QD (200 MG) (21DAYS/7D AYS BREAK)
     Route: 048
     Dates: start: 2021
  3. IMOVANE [Concomitant]
     Active Substance: ZOPICLONE
     Indication: Product used for unknown indication
     Dosage: 7.5 MG, QD, IN THE EVENING
     Route: 065

REACTIONS (4)
  - Tooth infection [Recovering/Resolving]
  - Neutropenia [Recovered/Resolved]
  - Cardiac fibrillation [Recovered/Resolved]
  - White blood cell count decreased [Unknown]

NARRATIVE: CASE EVENT DATE: 20210101
